FAERS Safety Report 13582787 (Version 1)
Quarter: 2017Q2

REPORT INFORMATION
  Report Type: Spontaneous
  Country: US (occurrence: US)
  Receive Date: 20170525
  Receipt Date: 20170525
  Transmission Date: 20170830
  Serious: No
  Sender: FDA-Public Use
  Company Number: US-TARO-2016TAR01025

PATIENT
  Age: 43 Year
  Sex: Female
  Weight: 52.15 kg

DRUGS (4)
  1. CLOTRIMAZOLE VAGINAL CREAM USP 2% 3 DAY [Suspect]
     Active Substance: CLOTRIMAZOLE
     Indication: FUNGAL INFECTION
     Dosage: 2 %, ONCE
     Route: 067
     Dates: start: 20161210, end: 20161210
  2. CLOTRIMAZOLE. [Suspect]
     Active Substance: CLOTRIMAZOLE
  3. FLUCONAZOLE. [Concomitant]
     Active Substance: FLUCONAZOLE
     Dosage: 150 MG, UNK
     Dates: start: 20161208, end: 20161211
  4. FLUCONAZOLE. [Concomitant]
     Active Substance: FLUCONAZOLE
     Dosage: 150 MG, UNK
     Dates: start: 20161211, end: 20161211

REACTIONS (5)
  - Skin fissures [Not Recovered/Not Resolved]
  - Genital pain [Not Recovered/Not Resolved]
  - Genital swelling [Not Recovered/Not Resolved]
  - Pruritus genital [Not Recovered/Not Resolved]
  - Hypersensitivity [Not Recovered/Not Resolved]

NARRATIVE: CASE EVENT DATE: 20161210
